FAERS Safety Report 4581066-5 (Version None)
Quarter: 2005Q1

REPORT INFORMATION
  Report Type: 
  Country: None (occurrence: None)
  Receive Date: 20050214
  Receipt Date: 20040728
  Transmission Date: 20050727
  Serious: No
  Sender: FDA-Public Use
  Company Number: US-GLAXOSMITHKLINE-A0520103A

PATIENT
  Age: 34 Year
  Sex: Female
  Weight: 63.6 kg

DRUGS (5)
  1. LAMICTAL [Suspect]
     Dosage: 500MG UNKNOWN
     Route: 048
  2. STRATTERA [Concomitant]
     Dates: start: 20040601, end: 20040701
  3. EFFEXOR XR [Concomitant]
     Indication: DEPRESSION
     Dates: start: 20040401
  4. AMBIEN [Concomitant]
     Dates: start: 20030101
  5. KLONOPIN [Concomitant]
     Indication: ANXIETY
     Dates: start: 20030101

REACTIONS (1)
  - RASH [None]
